FAERS Safety Report 21788162 (Version 2)
Quarter: 2023Q1

REPORT INFORMATION
  Report Type: Spontaneous
  Country: RU (occurrence: None)
  Receive Date: 20221228
  Receipt Date: 20230110
  Transmission Date: 20230418
  Serious: Yes (Life-Threatening, Hospitalization, Other)
  Sender: FDA-Public Use
  Company Number: RU-ROCHE-3250272

PATIENT
  Age: 48 Year
  Sex: Female
  Weight: 51 kg

DRUGS (5)
  1. TRASTUZUMAB [Suspect]
     Active Substance: TRASTUZUMAB
     Indication: HER2 positive breast cancer
     Route: 041
     Dates: start: 20221209, end: 20221209
  2. PERTUZUMAB [Suspect]
     Active Substance: PERTUZUMAB
     Indication: HER2 positive breast cancer
     Route: 065
  3. CAPECITABINE [Suspect]
     Active Substance: CAPECITABINE
     Indication: HER2 positive breast cancer
     Dosage: 2ND CYCLE
     Route: 048
     Dates: start: 202209, end: 20221118
  4. LAPATINIB [Suspect]
     Active Substance: LAPATINIB
     Indication: HER2 positive breast cancer
     Dosage: 2ND CYCLE
     Route: 065
     Dates: start: 202209, end: 20221118
  5. IXEMPRA [Concomitant]
     Active Substance: IXABEPILONE
     Indication: HER2 positive breast cancer
     Route: 041
     Dates: start: 20221209, end: 20221209

REACTIONS (9)
  - Diarrhoea [Not Recovered/Not Resolved]
  - Asthenia [Not Recovered/Not Resolved]
  - Hypotension [Unknown]
  - Sepsis [Not Recovered/Not Resolved]
  - Disease progression [Unknown]
  - Rash vesicular [Not Recovered/Not Resolved]
  - Oedema peripheral [Unknown]
  - Neutropenia [Unknown]
  - Peripheral swelling [Not Recovered/Not Resolved]

NARRATIVE: CASE EVENT DATE: 20221215
